FAERS Safety Report 15386790 (Version 1)
Quarter: 2018Q3

REPORT INFORMATION
  Report Type: Spontaneous
  Country: US (occurrence: US)
  Receive Date: 20180914
  Receipt Date: 20180914
  Transmission Date: 20181010
  Serious: No
  Sender: FDA-Public Use
  Company Number: US-STRONGBRIDGE BIOPHARMA-2018-STR-000307

PATIENT
  Age: 58 Year
  Sex: Male

DRUGS (1)
  1. KEVEYIS [Suspect]
     Active Substance: DICHLORPHENAMIDE
     Indication: PARALYSIS
     Dosage: 1/2 TABLET ONCE DAILY
     Route: 048
     Dates: start: 20180904

REACTIONS (5)
  - Depression [Unknown]
  - Disease recurrence [Unknown]
  - Malaise [Unknown]
  - Flat affect [Unknown]
  - Dysgeusia [Unknown]

NARRATIVE: CASE EVENT DATE: 20180907
